FAERS Safety Report 22895843 (Version 10)
Quarter: 2024Q1

REPORT INFORMATION
  Report Type: Spontaneous
  Country: US (occurrence: US)
  Receive Date: 20230901
  Receipt Date: 20240125
  Transmission Date: 20240410
  Serious: No
  Sender: FDA-Public Use
  Company Number: US-PFIZER INC-PV202300147834

PATIENT
  Age: 47 Year
  Sex: Female

DRUGS (2)
  1. IBRANCE [Suspect]
     Active Substance: PALBOCICLIB
     Dosage: UNK
  2. LETROZOLE [Concomitant]
     Active Substance: LETROZOLE
     Dosage: UNK (AT NIGHT)

REACTIONS (18)
  - Dehydration [Unknown]
  - Dizziness [Not Recovered/Not Resolved]
  - Somnolence [Unknown]
  - White blood cell count decreased [Not Recovered/Not Resolved]
  - Influenza like illness [Unknown]
  - Pyrexia [Unknown]
  - Pain [Unknown]
  - Full blood count abnormal [Unknown]
  - Hypoaesthesia [Unknown]
  - Bone pain [Unknown]
  - Chills [Unknown]
  - Fatigue [Unknown]
  - Chest pain [Unknown]
  - Back pain [Unknown]
  - Depression [Unknown]
  - Hot flush [Unknown]
  - Paraesthesia [Unknown]
  - Anxiety [Unknown]
